FAERS Safety Report 7280806-4 (Version None)
Quarter: 2011Q1

REPORT INFORMATION
  Report Type: 
  Country: None (occurrence: None)
  Receive Date: 20110208
  Receipt Date: 20110128
  Transmission Date: 20110831
  Serious: Yes (Hospitalization)
  Sender: FDA-Public Use
  Company Number: US-JNJFOC-20110200631

PATIENT
  Age: 63 Year
  Sex: Male

DRUGS (9)
  1. VELCADE [Suspect]
     Indication: MULTIPLE MYELOMA
     Dosage: DAYS 1, 4 , 8 AND 11 OF CYCLE
     Route: 042
  2. ACYCLOVIR [Concomitant]
     Indication: ILL-DEFINED DISORDER
     Route: 065
  3. DOXORUBICIN HCL [Suspect]
     Indication: MULTIPLE MYELOMA
     Dosage: DAY 4 OF CYCLE
     Route: 042
  4. BACTRIM DS [Concomitant]
     Indication: ILL-DEFINED DISORDER
     Route: 065
  5. ASPIRIN [Concomitant]
     Indication: ILL-DEFINED DISORDER
     Route: 065
  6. DECADRON [Suspect]
     Indication: MULTIPLE MYELOMA
     Dosage: DAYS 1, 2 AND 4 OF CYCLE
     Route: 065
  7. COMPAZINE [Concomitant]
     Indication: ILL-DEFINED DISORDER
     Route: 065
  8. REVLIMID [Suspect]
     Indication: MULTIPLE MYELOMA
     Dosage: DAYS 1-14 OF CYCLE
     Route: 048
  9. RITALIN [Concomitant]
     Indication: ILL-DEFINED DISORDER
     Route: 065

REACTIONS (3)
  - HYPOMAGNESAEMIA [None]
  - HYPERCALCAEMIA [None]
  - FATIGUE [None]
